FAERS Safety Report 16078562 (Version 1)
Quarter: 2019Q1

REPORT INFORMATION
  Report Type: Spontaneous
  Country: FR (occurrence: FR)
  Receive Date: 20190315
  Receipt Date: 20190315
  Transmission Date: 20190418
  Serious: Yes (Death)
  Sender: FDA-Public Use
  Company Number: FR-PFIZER INC-2019004846

PATIENT
  Age: 73 Year
  Sex: Female

DRUGS (3)
  1. DURAGESIC [Concomitant]
     Active Substance: FENTANYL
     Dosage: 50 MG, UNK
     Dates: start: 201812
  2. LYRICA [Suspect]
     Active Substance: PREGABALIN
     Dosage: 3 ML, 3X/DAY
     Dates: start: 201808
  3. LYRICA [Suspect]
     Active Substance: PREGABALIN
     Indication: NEOPLASM MALIGNANT
     Dosage: 20 MG, UNK

REACTIONS (4)
  - Death [Fatal]
  - Dysphagia [Unknown]
  - Product use in unapproved indication [Unknown]
  - Tremor [Not Recovered/Not Resolved]
